FAERS Safety Report 12417582 (Version 1)
Quarter: 2016Q2

REPORT INFORMATION
  Report Type: Spontaneous
  Country: US (occurrence: US)
  Receive Date: 20160530
  Receipt Date: 20160530
  Transmission Date: 20160815
  Serious: Yes (Death, Other)
  Sender: FDA-Public Use
  Company Number: US-TAKEDA-TPA2013A03274

PATIENT

DRUGS (7)
  1. DIABETA [Concomitant]
     Active Substance: GLYBURIDE
     Dosage: UNK
     Dates: start: 2000, end: 2009
  2. ACTOS [Suspect]
     Active Substance: PIOGLITAZONE HYDROCHLORIDE
     Indication: TYPE 2 DIABETES MELLITUS
     Dosage: UNK
     Route: 048
     Dates: start: 2002, end: 2011
  3. METFORMIN [Concomitant]
     Active Substance: METFORMIN HYDROCHLORIDE
     Dosage: 500 MG, UNK
     Dates: start: 2002, end: 2011
  4. AMARYL [Concomitant]
     Active Substance: GLIMEPIRIDE
     Dosage: 4 MG, UNK
     Dates: start: 2002, end: 2011
  5. AVANDIA [Concomitant]
     Active Substance: ROSIGLITAZONE MALEATE
     Dosage: 8 MG, UNK
     Dates: start: 2001, end: 2002
  6. GLUCOPHAGE [Concomitant]
     Active Substance: METFORMIN HYDROCHLORIDE
     Dosage: 500 MG, UNK
     Dates: start: 2002, end: 2003
  7. JANUVIA [Concomitant]
     Active Substance: SITAGLIPTIN PHOSPHATE
     Dosage: 100 MG, UNK
     Dates: start: 2008, end: 2011

REACTIONS (3)
  - Bladder cancer [Not Recovered/Not Resolved]
  - Bladder cancer recurrent [Not Recovered/Not Resolved]
  - Death [Fatal]

NARRATIVE: CASE EVENT DATE: 2005
